FAERS Safety Report 8428909-2 (Version None)
Quarter: 2012Q2

REPORT INFORMATION
  Report Type: 
  Country: None (occurrence: None)
  Receive Date: 20120612
  Receipt Date: 20120530
  Transmission Date: 20120825
  Serious: No
  Sender: FDA-Public Use
  Company Number: US-BAYER-2012-040456

PATIENT

DRUGS (3)
  1. GADAVIST [Suspect]
     Dosage: 7.5 ML, UNK
  2. GADAVIST [Suspect]
     Dosage: 10 ML, UNK
  3. GADAVIST [Suspect]
     Dosage: 15 ML, UNK

REACTIONS (3)
  - URTICARIA [None]
  - NAUSEA [None]
  - VOMITING [None]
